FAERS Safety Report 6158076-X (Version None)
Quarter: 2009Q2

REPORT INFORMATION
  Report Type: 
  Country: None (occurrence: None)
  Receive Date: 20090417
  Receipt Date: 20090406
  Transmission Date: 20091009
  Serious: Yes (Hospitalization, Other)
  Sender: FDA-Public Use
  Company Number: US-PFIZER INC-2008024517

PATIENT
  Sex: Female

DRUGS (1)
  1. DILANTIN-125 [Suspect]
     Dosage: UNK
     Route: 048
     Dates: start: 20070202, end: 20070301

REACTIONS (2)
  - SCAR [None]
  - STEVENS-JOHNSON SYNDROME [None]
